FAERS Safety Report 7896578-6 (Version None)
Quarter: 2011Q4

REPORT INFORMATION
  Report Type: 
  Country: None (occurrence: None)
  Receive Date: 20111104
  Receipt Date: 20111104
  Transmission Date: 20120403
  Serious: Yes (Life-Threatening, Hospitalization)
  Sender: FDA-Public Use
  Company Number: None

PATIENT
  Sex: Female
  Weight: 93.8946 kg

DRUGS (1)
  1. SEROQUEL [Suspect]
     Indication: BIPOLAR I DISORDER
     Dosage: 400MG 1X BEDTIME
     Dates: start: 20100511, end: 20111004

REACTIONS (6)
  - SELF-INJURIOUS IDEATION [None]
  - PANIC DISORDER [None]
  - NERVOUS SYSTEM DISORDER [None]
  - AMNESIA [None]
  - VIOLENCE-RELATED SYMPTOM [None]
  - ANXIETY [None]
